FAERS Safety Report 4590101-X (Version None)
Quarter: 2005Q1

REPORT INFORMATION
  Report Type: 
  Country: None (occurrence: None)
  Receive Date: 20050217
  Receipt Date: 20050110
  Transmission Date: 20050727
  Serious: No
  Sender: FDA-Public Use
  Company Number: 9738

PATIENT
  Age: 46 Year
  Sex: Male

DRUGS (3)
  1. VINBLASTINE SULFATE [Suspect]
     Indication: TESTIS CANCER
     Dosage: INTRAVENOUS
     Route: 042
     Dates: start: 20040928
  2. BLEOMYCIN [Suspect]
     Indication: TESTIS CANCER
     Dosage: INTRAVENOUS
     Route: 042
     Dates: start: 20040928
  3. METHOTREXATE [Suspect]
     Indication: TESTIS CANCER
     Dosage: INTRAVENOUS
     Route: 042
     Dates: start: 20040928

REACTIONS (4)
  - CANCER PAIN [None]
  - DRUG INEFFECTIVE [None]
  - LUNG DISORDER [None]
  - PAIN [None]
